FAERS Safety Report 7283086-9 (Version None)
Quarter: 2011Q1

REPORT INFORMATION
  Report Type: 
  Country: None (occurrence: None)
  Receive Date: 20110209
  Receipt Date: 20110203
  Transmission Date: 20110831
  Serious: Yes (Other)
  Sender: FDA-Public Use
  Company Number: BR-ROCHE-746593

PATIENT
  Sex: Female
  Weight: 98 kg

DRUGS (2)
  1. XENICAL [Suspect]
     Indication: WEIGHT CONTROL
     Dosage: DOSE: 1 CAPSULE PER DAY
     Route: 048
     Dates: start: 20101001
  2. XENICAL [Suspect]
     Dosage: DOSE: 2 CAPSULE PER DAY
     Route: 048
     Dates: end: 20110101

REACTIONS (3)
  - DRUG INEFFECTIVE [None]
  - CONSTIPATION [None]
  - INTERVERTEBRAL DISC PROTRUSION [None]
